FAERS Safety Report 8726637 (Version 2)
Quarter: 2012Q4

REPORT INFORMATION
  Report Type: 
  Country: US (occurrence: US)
  Receive Date: 20120816
  Receipt Date: 20120907
  Transmission Date: 20130627
  Serious: No
  Sender: FDA-Public Use
  Company Number: US-ASTRAZENECA-2012SE55335

PATIENT
  Age: 78 Year
  Sex: Female

DRUGS (2)
  1. PULMICORT RESPULES [Suspect]
     Indication: CHRONIC OBSTRUCTIVE PULMONARY DISEASE
     Dosage: 0.25/2 ML VIALS TWO TIMES A DAY
     Route: 055
  2. XOPENEX [Concomitant]

REACTIONS (2)
  - Agitation [Unknown]
  - Off label use [Unknown]
